FAERS Safety Report 11385660 (Version 1)
Quarter: 2015Q3

REPORT INFORMATION
  Report Type: Spontaneous
  Country: CA (occurrence: CA)
  Receive Date: 20150817
  Receipt Date: 20150817
  Transmission Date: 20151125
  Serious: Yes (Congenital Anomaly, Other)
  Sender: FDA-Public Use
  Company Number: CA-CIPLA LTD.-2015CA06627

PATIENT

DRUGS (7)
  1. ZIDOVUDINE. [Suspect]
     Active Substance: ZIDOVUDINE
     Indication: PROPHYLAXIS AGAINST HIV INFECTION
     Route: 065
  2. ABACAVIR. [Suspect]
     Active Substance: ABACAVIR
     Route: 064
  3. TENOFOVIR DISOFOXIL FUMARATE [Suspect]
     Active Substance: TENOFOVIR DISOPROXIL FUMARATE
     Route: 064
  4. EMTRICITABINE [Suspect]
     Active Substance: EMTRICITABINE
     Route: 064
  5. LAMIVUDINE. [Suspect]
     Active Substance: LAMIVUDINE
     Route: 064
  6. ATAZANAVIR/RITONAVIR [Suspect]
     Active Substance: ATAZANAVIR\RITONAVIR
     Route: 064
  7. RALTEGRAVIR. [Suspect]
     Active Substance: RALTEGRAVIR
     Dosage: 400 MG BID FOR MOTHER
     Route: 064

REACTIONS (5)
  - Foetal exposure during pregnancy [Unknown]
  - Melanocytic naevus [Unknown]
  - Supernumerary nipple [Unknown]
  - Hydronephrosis [Unknown]
  - Arrhythmia [Unknown]
